FAERS Safety Report 24675643 (Version 1)
Quarter: 2024Q4

REPORT INFORMATION
  Report Type: Report from Study
  Country: GB (occurrence: GB)
  Receive Date: 20241128
  Receipt Date: 20241128
  Transmission Date: 20250115
  Serious: Yes (Other)
  Sender: AMGEN
  Company Number: GB-AMGEN-GBRSL2024231165

PATIENT
  Sex: Male

DRUGS (1)
  1. USTEKINUMAB [Suspect]
     Active Substance: USTEKINUMAB
     Indication: Crohn^s disease
     Dosage: 90 MILLIGRAM, Q8WK
     Route: 058

REACTIONS (8)
  - Crohn^s disease [Unknown]
  - Pain in extremity [Unknown]
  - Pain [Unknown]
  - Musculoskeletal stiffness [Unknown]
  - Agitation [Unknown]
  - Arthralgia [Unknown]
  - Asthenia [Unknown]
  - Fatigue [Unknown]
